FAERS Safety Report 9078528 (Version 1)
Quarter: 2013Q1

REPORT INFORMATION
  Report Type: Report from Study
  Country: US (occurrence: US)
  Receive Date: 20130130
  Receipt Date: 20130130
  Transmission Date: 20140127
  Serious: No
  Sender: FDA-Public Use
  Company Number: US-ABBOTT-12P-163-0952073-00

PATIENT
  Sex: Female
  Weight: 72.19 kg

DRUGS (7)
  1. HUMIRA 40 MG/0.8 ML PEN [Suspect]
     Indication: CROHN^S DISEASE
     Dosage: OFF AND ON
     Dates: start: 200909
  2. CYMBALTA [Suspect]
     Indication: DEPRESSION
     Dates: start: 201110, end: 201205
  3. CYMBALTA [Suspect]
  4. XANAX [Concomitant]
     Indication: ANXIETY
     Dates: start: 1982
  5. ENALAPRIL [Concomitant]
     Indication: HYPERTENSION
  6. LASIX [Concomitant]
     Indication: DIURETIC THERAPY
  7. ASPIRIN [Concomitant]
     Indication: PRODUCT USED FOR UNKNOWN INDICATION

REACTIONS (11)
  - Malaise [Unknown]
  - Aphasia [Unknown]
  - Crying [Unknown]
  - Depression [Unknown]
  - Back pain [Unknown]
  - Joint range of motion decreased [Unknown]
  - Impaired driving ability [Unknown]
  - Nervousness [Unknown]
  - Nervousness [Unknown]
  - Insomnia [Unknown]
  - Crohn^s disease [Unknown]
